FAERS Safety Report 9685569 (Version 2)
Quarter: 2013Q4

REPORT INFORMATION
  Report Type: Spontaneous
  Country: NL (occurrence: NL)
  Receive Date: 20131113
  Receipt Date: 20131203
  Transmission Date: 20140711
  Serious: Yes (Hospitalization)
  Sender: FDA-Public Use
  Company Number: NL-NOVOPROD-392179

PATIENT
  Sex: Female

DRUGS (1)
  1. NOVOMIX 30 FLEXPEN [Suspect]
     Indication: PRODUCT USED FOR UNKNOWN INDICATION
     Dosage: UNK
     Route: 065

REACTIONS (2)
  - Malaise [Not Recovered/Not Resolved]
  - Fall [Not Recovered/Not Resolved]
